FAERS Safety Report 4450508-8 (Version None)
Quarter: 2004Q3

REPORT INFORMATION
  Report Type: 
  Country: None (occurrence: None)
  Receive Date: 20040914
  Receipt Date: 20040907
  Transmission Date: 20050211
  Serious: Yes (Death, Hospitalization)
  Sender: FDA-Public Use
  Company Number: 2004UW11874

PATIENT
  Age: 63 Year
  Sex: Male

DRUGS (6)
  1. SEROQUEL [Suspect]
     Dosage: 25 MG QAM PO
     Route: 048
  2. SEROQUEL [Suspect]
     Dosage: 12.5 MG PO
     Route: 048
  3. SEROQUEL [Suspect]
     Dosage: 100 MG HS PO
     Route: 048
  4. AMITRIPTYLINE HCL [Concomitant]
  5. ZYPREXA [Concomitant]
  6. HALDOL [Concomitant]

REACTIONS (2)
  - NEUROLEPTIC MALIGNANT SYNDROME [None]
  - PNEUMONIA [None]
